FAERS Safety Report 5466508-5 (Version None)
Quarter: 2007Q3

REPORT INFORMATION
  Report Type: 
  Country: None (occurrence: None)
  Receive Date: 20070820
  Receipt Date: 20070607
  Transmission Date: 20080115
  Serious: No
  Sender: FDA-Public Use
  Company Number: WAES 0706USA01316

PATIENT
  Age: 73 Year
  Sex: Female

DRUGS (3)
  1. JANUVIA [Suspect]
     Indication: TYPE 2 DIABETES MELLITUS
     Dosage: 100 MG/PO
     Route: 048
     Dates: start: 20070201
  2. INDERAL [Concomitant]
  3. NEXIUM [Concomitant]

REACTIONS (3)
  - FATIGUE [None]
  - HOT FLUSH [None]
  - HYPERHIDROSIS [None]
